FAERS Safety Report 8572974 (Version 6)
Quarter: 2013Q2

REPORT INFORMATION
  Report Type: Report from Study
  Country: CA (occurrence: CA)
  Receive Date: 20120522
  Receipt Date: 20130422
  Transmission Date: 20140414
  Serious: Yes (Death, Hospitalization, Other)
  Sender: FDA-Public Use
  Company Number: PHHY2012CA042891

PATIENT
  Age: 59 Year
  Sex: Female

DRUGS (1)
  1. CLOZARIL [Suspect]
     Dosage: UNK UKN, UNK
     Dates: start: 20041026

REACTIONS (10)
  - Death [Fatal]
  - Asthma [Unknown]
  - Acute respiratory failure [Recovered/Resolved]
  - Respiratory tract infection [Unknown]
  - Influenza [Unknown]
  - White blood cell count increased [Unknown]
  - Neutrophil count increased [Unknown]
  - Monocyte count increased [Unknown]
  - Normochromic normocytic anaemia [Unknown]
  - Haemoglobin decreased [Recovered/Resolved]
